FAERS Safety Report 8506567-6 (Version None)
Quarter: 2012Q2

REPORT INFORMATION
  Report Type: 
  Country: None (occurrence: None)
  Receive Date: 20120405
  Receipt Date: 20090220
  Transmission Date: 20120825
  Serious: Yes (Other)
  Sender: FDA-Public Use
  Company Number: PHEH2009US01973

PATIENT
  Age: 76 Year
  Sex: Female

DRUGS (2)
  1. ULTRAM [Concomitant]
  2. RECLAST [Suspect]
     Dosage: INFUSION

REACTIONS (5)
  - FIBROMYALGIA [None]
  - JAW DISORDER [None]
  - TEMPOROMANDIBULAR JOINT SYNDROME [None]
  - ARTHRITIS [None]
  - ARTHRALGIA [None]
